FAERS Safety Report 9174674 (Version 1)
Quarter: 2013Q1

REPORT INFORMATION
  Report Type: Spontaneous
  Country: GB (occurrence: None)
  Receive Date: 20130318
  Receipt Date: 20130318
  Transmission Date: 20140127
  Serious: Yes (Other)
  Sender: FDA-Public Use
  Company Number: FK201300772

PATIENT
  Age: 62 Year
  Sex: Female

DRUGS (2)
  1. GENTAMICIN [Suspect]
     Indication: PRODUCT USED FOR UNKNOWN INDICATION
     Dosage: 1 IN 1 ONCE
     Route: 057
  2. MAXITROL OPHTHALMIC SUSPENSION [Concomitant]

REACTIONS (4)
  - Cystoid macular oedema [None]
  - Eye pain [None]
  - Visual acuity reduced [None]
  - Toxic anterior segment syndrome [None]
